FAERS Safety Report 14335657 (Version 1)
Quarter: 2017Q4

REPORT INFORMATION
  Report Type: Spontaneous
  Country: ES (occurrence: ES)
  Receive Date: 20171229
  Receipt Date: 20171229
  Transmission Date: 20180321
  Serious: Yes (Other)
  Sender: FDA-Public Use
  Company Number: ES-GEHC-2017CSU004153

PATIENT

DRUGS (3)
  1. OMNIPAQUE [Suspect]
     Active Substance: IOHEXOL
     Indication: NEOPLASM MALIGNANT
     Dosage: 90 ML, SINGLE
     Route: 040
     Dates: start: 20171215, end: 20171215
  2. OMNIPAQUE [Suspect]
     Active Substance: IOHEXOL
     Dosage: 25 ML, SINGLE
     Route: 042
     Dates: start: 20171215, end: 20171215
  3. OMNIPAQUE [Suspect]
     Active Substance: IOHEXOL
     Dosage: 20 ML, SINGLE
     Route: 048
     Dates: start: 20171215, end: 20171215

REACTIONS (4)
  - Erythema [Recovered/Resolved]
  - Respiratory distress [Recovered/Resolved]
  - Urinary tract infection [Unknown]
  - Urticaria [Recovered/Resolved]

NARRATIVE: CASE EVENT DATE: 20171215
